FAERS Safety Report 8862768 (Version 1)
Quarter: 2012Q4

REPORT INFORMATION
  Report Type: 
  Country: US (occurrence: US)
  Receive Date: 20121026
  Receipt Date: 20121026
  Transmission Date: 20130627
  Serious: No
  Sender: FDA-Public Use
  Company Number: US-ALLERGAN-1208291US

PATIENT
  Age: 65 Year
  Sex: Male

DRUGS (2)
  1. ALPHAGAN P [Suspect]
     Indication: GLAUCOMA
     Dosage: 2 Gtt, tid
     Route: 047
     Dates: start: 20120516
  2. PROSCAR [Suspect]
     Indication: ENLARGED PROSTATE

REACTIONS (3)
  - Inappropriate schedule of drug administration [Not Recovered/Not Resolved]
  - Pityriasis rosea [Recovered/Resolved]
  - Fatigue [Recovering/Resolving]
